FAERS Safety Report 17585139 (Version 1)
Quarter: 2020Q1

REPORT INFORMATION
  Report Type: Report from Study
  Country: CO (occurrence: CO)
  Receive Date: 20200326
  Receipt Date: 20200326
  Transmission Date: 20200409
  Serious: Yes (Other)
  Sender: FDA-Public Use
  Company Number: CO-ROCHE-2488206

PATIENT
  Sex: Female

DRUGS (3)
  1. LAPATINIB [Concomitant]
     Active Substance: LAPATINIB
  2. TRASTUZUMAB. [Suspect]
     Active Substance: TRASTUZUMAB
     Indication: PRODUCT USED FOR UNKNOWN INDICATION
     Route: 065
  3. XELODA [Suspect]
     Active Substance: CAPECITABINE
     Indication: PRODUCT USED FOR UNKNOWN INDICATION
     Route: 065

REACTIONS (9)
  - Face injury [Unknown]
  - Nasopharyngitis [Unknown]
  - Peripheral coldness [Unknown]
  - Feeling of despair [Unknown]
  - Malaise [Unknown]
  - Skin discolouration [Unknown]
  - Pain [Unknown]
  - Poisoning [Unknown]
  - Localised infection [Unknown]
